FAERS Safety Report 17500097 (Version 2)
Quarter: 2025Q2

REPORT INFORMATION
  Report Type: Spontaneous
  Country: DE (occurrence: DE)
  Receive Date: 20200305
  Receipt Date: 20250621
  Transmission Date: 20250717
  Serious: Yes (Other)
  Sender: AUROBINDO
  Company Number: DE-TEVA-2020-DE-1166880

PATIENT
  Age: 40 Year
  Sex: Male

DRUGS (3)
  1. DONEPEZIL [Suspect]
     Active Substance: DONEPEZIL
     Indication: Dementia Alzheimer^s type
     Route: 065
  2. DONEPEZIL [Suspect]
     Active Substance: DONEPEZIL
     Route: 065
  3. MEMANTINE [Concomitant]
     Active Substance: MEMANTINE
     Indication: Dementia Alzheimer^s type
     Route: 065

REACTIONS (4)
  - Pleurothotonus [Recovered/Resolved]
  - Seizure [Unknown]
  - Disease progression [Unknown]
  - Myoclonus [Unknown]
